FAERS Safety Report 17051918 (Version 1)
Quarter: 2019Q4

REPORT INFORMATION
  Report Type: Report from Study
  Country: US (occurrence: US)
  Receive Date: 20191120
  Receipt Date: 20191120
  Transmission Date: 20200122
  Serious: Yes (Life-Threatening)
  Sender: FDA-Public Use
  Company Number: US-ELI_LILLY_AND_COMPANY-US201911007820

PATIENT

DRUGS (3)
  1. GEMCITABINE HYDROCHLORIDE. [Suspect]
     Active Substance: GEMCITABINE HYDROCHLORIDE
     Indication: CHOLANGIOCARCINOMA
     Dosage: UNK UNK, UNKNOWN
     Route: 065
  2. FLOXURIDINE. [Concomitant]
     Active Substance: FLOXURIDINE
     Indication: CHOLANGIOCARCINOMA
     Dosage: UNK, CYCLICAL (4-WEEK CYCLE)
     Route: 050
  3. OXALIPLATIN. [Concomitant]
     Active Substance: OXALIPLATIN
     Indication: CHOLANGIOCARCINOMA
     Dosage: UNK UNK, UNKNOWN
     Route: 065

REACTIONS (1)
  - Aneurysm [Unknown]
